FAERS Safety Report 9835231 (Version 1)
Quarter: 2014Q1

REPORT INFORMATION
  Report Type: Spontaneous
  Country: US (occurrence: US)
  Receive Date: 20140122
  Receipt Date: 20140122
  Transmission Date: 20141002
  Serious: No
  Sender: FDA-Public Use
  Company Number: US-BRISTOL-MYERS SQUIBB COMPANY-19879972

PATIENT
  Age: 63 Year
  Sex: Male
  Weight: 87.53 kg

DRUGS (4)
  1. ELIQUIS [Suspect]
     Indication: ATRIAL FIBRILLATION
  2. METOPROLOL [Suspect]
  3. METHIMAZOLE [Suspect]
  4. IRBESARTAN [Concomitant]
     Dosage: 300MG ONE AT NIGHT

REACTIONS (1)
  - Dizziness [Unknown]
